FAERS Safety Report 18596852 (Version 1)
Quarter: 2020Q4

REPORT INFORMATION
  Report Type: Spontaneous
  Country: CN (occurrence: CN)
  Receive Date: 20201209
  Receipt Date: 20201209
  Transmission Date: 20210114
  Serious: Yes (Other)
  Sender: FDA-Public Use
  Company Number: CN-PFIZER INC-2020481936

PATIENT
  Age: 62 Year
  Sex: Female
  Weight: 67.4 kg

DRUGS (1)
  1. SOLU-MEDROL [Suspect]
     Active Substance: METHYLPREDNISOLONE SODIUM SUCCINATE
     Indication: SYMPTOMATIC TREATMENT
     Dosage: 20 MG, 1X/DAY
     Route: 041
     Dates: start: 20201106, end: 20201107

REACTIONS (6)
  - Blood pressure decreased [Recovered/Resolved]
  - Vomiting [Recovering/Resolving]
  - Headache [Recovering/Resolving]
  - Pain [Recovering/Resolving]
  - Nausea [Recovering/Resolving]
  - Flushing [Recovering/Resolving]

NARRATIVE: CASE EVENT DATE: 20201107
